FAERS Safety Report 19165348 (Version 1)
Quarter: 2021Q2

REPORT INFORMATION
  Report Type: Spontaneous
  Country: US (occurrence: US)
  Receive Date: 20210421
  Receipt Date: 20210421
  Transmission Date: 20210717
  Serious: Yes (Other)
  Sender: FDA-Public Use
  Company Number: US-GLAXOSMITHKLINE-USCH2021AMR020817

PATIENT
  Age: 52 Year
  Sex: Female
  Weight: 90.72 kg

DRUGS (4)
  1. IBUPROFEN. [Suspect]
     Active Substance: IBUPROFEN
     Indication: PAIN
     Dosage: 7 DF, QD
  2. IBUPROFEN. [Suspect]
     Active Substance: IBUPROFEN
     Dosage: 6 MG (EVERY MORNING)
  3. IBUPROFEN. [Suspect]
     Active Substance: IBUPROFEN
     Dosage: 8 UNK (EVERY NIGHT)
  4. XARELTO [Suspect]
     Active Substance: RIVAROXABAN
     Indication: THROMBOSIS
     Dosage: UNK
     Dates: start: 20210413

REACTIONS (6)
  - Overdose [Unknown]
  - Pain [Not Recovered/Not Resolved]
  - Condition aggravated [Unknown]
  - Drug ineffective [Unknown]
  - Peripheral swelling [Not Recovered/Not Resolved]
  - Thrombosis [Not Recovered/Not Resolved]

NARRATIVE: CASE EVENT DATE: 20210413
